FAERS Safety Report 18879047 (Version 2)
Quarter: 2021Q1

REPORT INFORMATION
  Report Type: Spontaneous
  Country: US (occurrence: US)
  Receive Date: 20210211
  Receipt Date: 20210216
  Transmission Date: 20210420
  Serious: Yes (Other)
  Sender: FDA-Public Use
  Company Number: US-PFIZER INC-2021114807

PATIENT
  Age: 28 Year
  Sex: Female

DRUGS (4)
  1. VINCRISTINE SULFATE. [Suspect]
     Active Substance: VINCRISTINE SULFATE
     Indication: NEUROFIBROSARCOMA METASTATIC
     Dosage: UNK
  2. DOXORUBICIN HCL [Suspect]
     Active Substance: DOXORUBICIN HYDROCHLORIDE
     Indication: NEUROFIBROSARCOMA METASTATIC
     Dosage: UNK
  3. CYCLOPHOSPHAMIDE. [Suspect]
     Active Substance: CYCLOPHOSPHAMIDE
     Indication: NEUROFIBROSARCOMA METASTATIC
     Dosage: UNK
  4. IFOSFAMIDE. [Suspect]
     Active Substance: IFOSFAMIDE
     Indication: NEUROFIBROSARCOMA METASTATIC
     Dosage: UNK

REACTIONS (5)
  - Off label use [Unknown]
  - Neutropenia [Unknown]
  - Fungal infection [Unknown]
  - Fungaemia [Unknown]
  - Thrombocytopenia [Unknown]
